FAERS Safety Report 23624493 (Version 6)
Quarter: 2024Q4

REPORT INFORMATION
  Report Type: Spontaneous
  Country: US (occurrence: US)
  Receive Date: 20240313
  Receipt Date: 20241023
  Transmission Date: 20250115
  Serious: No
  Sender: BRISTOL-MYERS SQUIBB COMPANY
  Company Number: US-BRISTOL-MYERS SQUIBB COMPANY-2024-039329

PATIENT
  Age: 61 Year
  Sex: Male
  Weight: 77.56 kg

DRUGS (2)
  1. REVLIMID [Suspect]
     Active Substance: LENALIDOMIDE
     Indication: Plasma cell myeloma
     Route: 048
     Dates: start: 20230501
  2. LACTASE [Suspect]
     Active Substance: LACTASE
     Indication: Lactose intolerance

REACTIONS (8)
  - Diarrhoea [Recovering/Resolving]
  - Blood potassium decreased [Recovering/Resolving]
  - Muscle spasms [Unknown]
  - Lactose intolerance [Recovered/Resolved]
  - Laboratory test abnormal [Unknown]
  - Gastrointestinal disorder [Recovered/Resolved]
  - Light chain analysis increased [Recovering/Resolving]
  - Rash [Unknown]
